FAERS Safety Report 5073529-3 (Version None)
Quarter: 2006Q3

REPORT INFORMATION
  Report Type: 
  Country: None (occurrence: None)
  Receive Date: 20060717
  Receipt Date: 20051216
  Transmission Date: 20061208
  Serious: No
  Sender: FDA-Public Use
  Company Number: 2005002391

PATIENT
  Age: 75 Year
  Sex: Female

DRUGS (11)
  1. TARCEVA [Suspect]
     Indication: LUNG NEOPLASM MALIGNANT
     Dosage: 100 MG (QD), ORAL
     Route: 048
     Dates: start: 20051001
  2. ASPIRIN [Concomitant]
  3. SYNTHROID [Concomitant]
  4. NEXIUM [Concomitant]
  5. CALCIUM (CALCIUM) [Concomitant]
  6. ACCUPRIL [Concomitant]
  7. TRILEPTAL [Concomitant]
  8. NORVASC [Concomitant]
  9. MULTIVITAMIN [Concomitant]
  10. IRON (IRON) [Concomitant]
  11. ZITHROMAX [Concomitant]

REACTIONS (2)
  - ARTHRALGIA [None]
  - PULMONARY CONGESTION [None]
